FAERS Safety Report 6160595-7 (Version None)
Quarter: 2009Q2

REPORT INFORMATION
  Report Type: 
  Country: None (occurrence: None)
  Receive Date: 20090420
  Receipt Date: 20090410
  Transmission Date: 20091009
  Serious: Yes (Hospitalization)
  Sender: FDA-Public Use
  Company Number: MU-BRISTOL-MYERS SQUIBB COMPANY-14592687

PATIENT
  Sex: Female

DRUGS (4)
  1. METFORMIN HCL [Suspect]
  2. PIOGLITAZONE HCL [Suspect]
  3. AMLODIPINE [Suspect]
  4. DETENSIEL [Suspect]

REACTIONS (1)
  - BRADYCARDIA [None]
